FAERS Safety Report 8545540-9 (Version None)
Quarter: 2012Q3

REPORT INFORMATION
  Report Type: 
  Country: None (occurrence: None)
  Receive Date: 20120727
  Receipt Date: 20111024
  Transmission Date: 20120928
  Serious: No
  Sender: FDA-Public Use
  Company Number: US-ASTRAZENECA-2011SE64512

PATIENT
  Age: 40 Year
  Sex: Female

DRUGS (3)
  1. SEROQUEL [Suspect]
     Route: 048
  2. COLD MEDICATION [Concomitant]
     Indication: NASOPHARYNGITIS
  3. SEROQUEL [Suspect]
     Route: 048

REACTIONS (1)
  - NASOPHARYNGITIS [None]
